FAERS Safety Report 24716634 (Version 1)
Quarter: 2024Q4

REPORT INFORMATION
  Report Type: Spontaneous
  Country: US (occurrence: US)
  Receive Date: 20241210
  Receipt Date: 20241210
  Transmission Date: 20250115
  Serious: Yes (Other)
  Sender: MYLAN
  Company Number: US-MYLANLABS-2024M1107636

PATIENT
  Age: 62 Year
  Sex: Male

DRUGS (3)
  1. ERYTHROMYCIN [Interacting]
     Active Substance: ERYTHROMYCIN
     Indication: Osteomyelitis
     Dosage: 500 MILLIGRAM, QID (FOR SIX WEEKS)
     Route: 065
  2. TACROLIMUS [Interacting]
     Active Substance: TACROLIMUS
     Indication: Immunosuppressant drug therapy
     Dosage: UNK
     Route: 065
  3. DOXYCYCLINE [Suspect]
     Active Substance: DOXYCYCLINE
     Indication: Osteomyelitis
     Dosage: 100 MILLIGRAM, BID (FOR SIX WEEKS)
     Route: 065

REACTIONS (4)
  - Labelled drug-drug interaction medication error [Recovering/Resolving]
  - Acute kidney injury [Recovering/Resolving]
  - Condition aggravated [Unknown]
  - Hyperoxaluria [Unknown]
